FAERS Safety Report 21972682 (Version 1)
Quarter: 2023Q1

REPORT INFORMATION
  Report Type: Spontaneous
  Country: KR (occurrence: None)
  Receive Date: 20230209
  Receipt Date: 20230209
  Transmission Date: 20230418
  Serious: Yes (Other)
  Sender: FDA-Public Use
  Company Number: 2023A031554

PATIENT
  Age: 60 Year
  Sex: Female

DRUGS (2)
  1. OSIMERTINIB [Suspect]
     Active Substance: OSIMERTINIB
     Indication: Non-small cell lung cancer
     Dates: start: 201711
  2. ERLOTINIB [Concomitant]
     Active Substance: ERLOTINIB
     Indication: Non-small cell lung cancer
     Dosage: 150.0MG UNKNOWN
     Dates: start: 20160618

REACTIONS (1)
  - Malignant neoplasm oligoprogression [Unknown]

NARRATIVE: CASE EVENT DATE: 20210301
